FAERS Safety Report 16577042 (Version 2)
Quarter: 2019Q3

REPORT INFORMATION
  Report Type: Report from Study
  Country: US (occurrence: US)
  Receive Date: 20190716
  Receipt Date: 20190823
  Transmission Date: 20191004
  Serious: Yes (Hospitalization)
  Sender: FDA-Public Use
  Company Number: US-ROCHE-2353169

PATIENT
  Age: 52 Year
  Sex: Female
  Weight: 95.3 kg

DRUGS (1)
  1. OBINUTUZUMAB. [Suspect]
     Active Substance: OBINUTUZUMAB
     Indication: GRAFT VERSUS HOST DISEASE
     Dosage: WILL BE ADMINISTERED AT A PRE- DETERMINE DOSE, INTRAVENOUSLY, AT 3, 6, 9 AND 12 MONTHS FROM TRANSPLA
     Route: 042
     Dates: start: 20181228

REACTIONS (2)
  - Pneumonia [Recovered/Resolved]
  - Sepsis [Unknown]

NARRATIVE: CASE EVENT DATE: 20190624
